FAERS Safety Report 12386587 (Version 1)
Quarter: 2016Q2

REPORT INFORMATION
  Report Type: Spontaneous
  Country: US (occurrence: US)
  Receive Date: 20160519
  Receipt Date: 20160519
  Transmission Date: 20160815
  Serious: Yes (Other)
  Sender: FDA-Public Use
  Company Number: US-ARBOR PHARMACEUTICALS, LLC-US-2016ARB000346

PATIENT
  Age: 45 Year
  Sex: Male

DRUGS (1)
  1. AMPHETAMINE SULFATE [Suspect]
     Active Substance: AMPHETAMINE SULFATE
     Indication: PRODUCT USED FOR UNKNOWN INDICATION
     Dosage: UNK

REACTIONS (4)
  - Hypertension [Recovering/Resolving]
  - Posterior reversible encephalopathy syndrome [Unknown]
  - Headache [Unknown]
  - Central nervous system lesion [Recovering/Resolving]
